FAERS Safety Report 6242229-6 (Version None)
Quarter: 2009Q2

REPORT INFORMATION
  Report Type: 
  Country: None (occurrence: None)
  Receive Date: 20090622
  Receipt Date: 20090622
  Transmission Date: 20091009
  Serious: Yes (Hospitalization)
  Sender: FDA-Public Use
  Company Number: None

PATIENT
  Age: 42 Year

DRUGS (1)
  1. HYDROMORPHONE HCL [Suspect]
     Indication: PAIN
     Dosage: 4 MG PRN PO
     Route: 048
     Dates: start: 20090123, end: 20090204

REACTIONS (11)
  - ANAPHYLACTIC REACTION [None]
  - ASTHENIA [None]
  - DIZZINESS [None]
  - EXCORIATION [None]
  - OEDEMA PERIPHERAL [None]
  - PAIN OF SKIN [None]
  - PALLOR [None]
  - RASH PAPULAR [None]
  - RASH PRURITIC [None]
  - SYNCOPE [None]
  - THERAPY CESSATION [None]
